FAERS Safety Report 8990347 (Version 1)
Quarter: 2012Q4

REPORT INFORMATION
  Report Type: 
  Country: US (occurrence: US)
  Receive Date: 20121228
  Receipt Date: 20121228
  Transmission Date: 20130627
  Serious: Yes (Other)
  Sender: FDA-Public Use
  Company Number: US-ASTRAZENECA-2012SE94503

PATIENT
  Age: 64 Year
  Sex: Female

DRUGS (5)
  1. OMEPRAZOLE [Suspect]
     Indication: GASTRIC ULCER
     Route: 048
     Dates: start: 2012, end: 20121216
  2. HIGH BLOOD PRESSURE MEDICATIONS [Concomitant]
     Indication: HYPERTENSION
  3. VITAMINS [Concomitant]
  4. FISH OIL [Concomitant]
  5. POTASSIUM [Concomitant]

REACTIONS (2)
  - Pancreatic disorder [Unknown]
  - Abdominal pain upper [Unknown]
